FAERS Safety Report 8018299-1 (Version None)
Quarter: 2012Q1

REPORT INFORMATION
  Report Type: 
  Country: None (occurrence: None)
  Receive Date: 20120103
  Receipt Date: 20111220
  Transmission Date: 20120608
  Serious: Yes (Hospitalization, Disabling)
  Sender: FDA-Public Use
  Company Number: GB-PURDUE-USA-2011-0078325

PATIENT
  Age: 65 Year
  Sex: Male
  Weight: 51 kg

DRUGS (9)
  1. TRAMADOL HCL [Suspect]
     Indication: PRODUCT USED FOR UNKNOWN INDICATION
     Dosage: 100 MG, TID
  2. LYRICA [Suspect]
     Dosage: 300 MG, BID
  3. NALOXONE HCL [Suspect]
     Indication: PRODUCT USED FOR UNKNOWN INDICATION
     Dosage: 5 MG, TID
  4. ORAMORPH SR [Suspect]
     Indication: PRODUCT USED FOR UNKNOWN INDICATION
     Dosage: 10 MG, TID
  5. ORAMORPH SR [Suspect]
     Dosage: 15 MG, TID
  6. ACETAMINOPHEN [Suspect]
     Indication: PRODUCT USED FOR UNKNOWN INDICATION
     Dosage: 1 G, TID
  7. LYRICA [Suspect]
     Indication: ABDOMINAL PAIN
     Dosage: 150 MG, BID
     Dates: start: 20080101
  8. FENTANYL [Suspect]
     Indication: PRODUCT USED FOR UNKNOWN INDICATION
     Dosage: 25 MCG, 1 DP 1X3 DAYS
  9. REQUIP [Concomitant]
     Indication: PARKINSON'S DISEASE

REACTIONS (2)
  - CARDIO-RESPIRATORY ARREST [None]
  - ABDOMINAL PAIN [None]
